FAERS Safety Report 21487222 (Version 1)
Quarter: 2022Q4

REPORT INFORMATION
  Report Type: Spontaneous
  Country: US (occurrence: US)
  Receive Date: 20221020
  Receipt Date: 20221020
  Transmission Date: 20230113
  Serious: Yes (Other)
  Sender: FDA-Public Use
  Company Number: US-BRISTOL-MYERS SQUIBB COMPANY-2022-122462

PATIENT
  Age: 70 Year
  Sex: Male

DRUGS (8)
  1. SPRYCEL [Suspect]
     Active Substance: DASATINIB
     Indication: Chronic myeloid leukaemia
     Dosage: DOSE: 5 YEARS; FREQ: ONCE DAILY
     Route: 048
     Dates: end: 2021
  2. SPRYCEL [Suspect]
     Active Substance: DASATINIB
     Dosage: DOSE: 5 YEARS; FREQ: ONCE DAILY
     Route: 048
     Dates: end: 20221005
  3. PROSCAR [Concomitant]
     Active Substance: FINASTERIDE
     Indication: Product used for unknown indication
  4. CYMBALTA [Concomitant]
     Active Substance: DULOXETINE HYDROCHLORIDE
     Indication: Product used for unknown indication
  5. METOPROLOL [Concomitant]
     Active Substance: METOPROLOL
     Indication: Product used for unknown indication
  6. ASPIRIN [Concomitant]
     Active Substance: ASPIRIN
     Indication: Product used for unknown indication
  7. ERGOCALCIFEROL [Concomitant]
     Active Substance: ERGOCALCIFEROL
     Indication: Product used for unknown indication
     Dosage: 4000 UNITES
  8. PREVAGEN [APOAEQUORIN] [Concomitant]
     Indication: Product used for unknown indication
     Dosage: FOR MEMORY

REACTIONS (5)
  - Amyotrophic lateral sclerosis [Unknown]
  - Muscle spasms [Unknown]
  - Neuropathy peripheral [Unknown]
  - Prescribed underdose [Unknown]
  - Wrong technique in product usage process [Unknown]
